FAERS Safety Report 8780594 (Version 3)
Quarter: 2012Q4

REPORT INFORMATION
  Report Type: 
  Country: DE (occurrence: DE)
  Receive Date: 20120913
  Receipt Date: 20121009
  Transmission Date: 20130627
  Serious: Yes (Life-Threatening, Hospitalization)
  Sender: FDA-Public Use
  Company Number: PHHY2012DE061954

PATIENT
  Age: 76 Year
  Sex: Male
  Weight: 67.4 kg

DRUGS (24)
  1. AMN107 [Suspect]
     Indication: CHRONIC MYELOID LEUKAEMIA
     Dosage: 800 mg, daily
     Route: 048
     Dates: start: 20111111, end: 20120714
  2. AQUAPHOR TABLET [Suspect]
     Indication: RENAL FAILURE
     Dosage: 10 mg, daily
     Route: 048
     Dates: start: 20120410
  3. EBRANTIL [Suspect]
     Indication: HYPERTENSION
     Dosage: 180 mg, daily
     Route: 048
     Dates: start: 20120515, end: 20120714
  4. LYRICA [Suspect]
     Indication: PAIN
     Dosage: 75-150 mg daily
     Route: 048
     Dates: start: 20080410, end: 20120514
  5. NSAR [Suspect]
  6. BELOC ZOK [Concomitant]
     Indication: HYPERTENSION
     Dosage: 47.5 mg, daily
     Route: 048
     Dates: start: 20120714
  7. TILIDIN ^RATIOPHARM^ [Concomitant]
     Indication: PAIN
     Dosage: 50 mg, UNK
     Dates: start: 20120515
  8. SIMVASTATIN [Concomitant]
     Indication: METABOLIC DISORDER
     Dosage: 40 mg, daily
     Route: 048
     Dates: start: 20100902
  9. ASS [Concomitant]
     Indication: HYPERTENSION
     Dosage: 100 mg, daily
     Route: 048
     Dates: start: 20100902
  10. EXFORGE HCT [Concomitant]
     Indication: HYPERTENSION
     Dosage: 10/320/25 mg, daily
     Route: 048
  11. NEXIUM [Concomitant]
     Indication: OESOPHAGITIS
     Dosage: 20 mg, daily
     Route: 048
  12. MUSARIL [Concomitant]
     Dosage: UNK
     Dates: start: 20111116, end: 20111221
  13. PREDNISOLONE [Concomitant]
     Dosage: 5 mg, daily
     Dates: start: 20100517, end: 20120515
  14. PREDNISOLONE [Concomitant]
     Dosage: 5 mg, daily
     Dates: start: 20120727
  15. TOREM [Concomitant]
     Dosage: 10 mg, UNK
     Dates: start: 20080410, end: 20120727
  16. FURESIS COMP [Concomitant]
     Dosage: 125 mg, UNK
     Dates: start: 20120727
  17. CARMEN [Concomitant]
     Dosage: 10 mg, UNK
     Dates: start: 20120714
  18. VALSARTAN [Concomitant]
     Dosage: 80 mg, UNK
     Dates: start: 20111221
  19. CYNT [Concomitant]
     Dosage: 0.3 mg, UNK
     Dates: start: 20110714
  20. OMEPRAZOLE [Concomitant]
     Dosage: 20 mg, UNK
     Dates: start: 20061201
  21. NEBIVOLOL [Concomitant]
     Dosage: UNK
     Dates: start: 20111221, end: 20120714
  22. BIFITERAL [Concomitant]
     Dosage: UNK
     Dates: start: 20120804
  23. AMLODIPINE [Concomitant]
     Dosage: UNK
     Dates: start: 20120213, end: 20120514
  24. SAROTEN [Concomitant]
     Dosage: UNK
     Dates: start: 20120213, end: 20120514

REACTIONS (6)
  - Disorientation [Not Recovered/Not Resolved]
  - Renal failure acute [Not Recovered/Not Resolved]
  - Urine output decreased [Not Recovered/Not Resolved]
  - Bladder hypertrophy [Not Recovered/Not Resolved]
  - Hypertension [Recovered/Resolved]
  - Transient ischaemic attack [Recovered/Resolved]
